FAERS Safety Report 11620667 (Version 2)
Quarter: 2015Q4

REPORT INFORMATION
  Report Type: Report from Study
  Country: JP (occurrence: JP)
  Receive Date: 20151012
  Receipt Date: 20151116
  Transmission Date: 20160304
  Serious: Yes (Death)
  Sender: FDA-Public Use
  Company Number: JP-JNJFOC-20151008297

PATIENT
  Age: 84 Year
  Sex: Female
  Weight: 62.8 kg

DRUGS (7)
  1. XARELTO [Suspect]
     Active Substance: RIVAROXABAN
     Indication: THROMBOSIS PROPHYLAXIS
     Route: 048
     Dates: start: 20150305, end: 20150318
  2. TENORMIN [Concomitant]
     Active Substance: ATENOLOL
     Route: 048
     Dates: end: 20150318
  3. CONAN [Concomitant]
     Active Substance: QUINAPRIL HYDROCHLORIDE
     Route: 048
     Dates: end: 20150318
  4. NATRIX [Concomitant]
     Active Substance: INDAPAMIDE
     Route: 048
     Dates: end: 20150318
  5. XARELTO [Suspect]
     Active Substance: RIVAROXABAN
     Indication: CEREBROVASCULAR ACCIDENT PROPHYLAXIS
     Route: 048
     Dates: start: 20150305, end: 20150318
  6. XARELTO [Suspect]
     Active Substance: RIVAROXABAN
     Indication: ATRIAL FIBRILLATION
     Route: 048
     Dates: start: 20150305, end: 20150318
  7. BAYASPIRIN [Concomitant]
     Active Substance: ASPIRIN
     Route: 048
     Dates: end: 20150318

REACTIONS (1)
  - Cerebral infarction [Fatal]

NARRATIVE: CASE EVENT DATE: 20150318
